FAERS Safety Report 9369021 (Version 2)
Quarter: 2013Q3

REPORT INFORMATION
  Report Type: Report from Study
  Country: CA (occurrence: CA)
  Receive Date: 20130626
  Receipt Date: 20130711
  Transmission Date: 20140515
  Serious: Yes (Other)
  Sender: FDA-Public Use
  Company Number: PHHY2013CA064709

PATIENT
  Age: 75 Year
  Sex: Female
  Weight: 87 kg

DRUGS (3)
  1. ACLASTA/ZOLEDRONATE [Suspect]
     Dosage: UNK UKN, UNK
     Route: 042
  2. VITAMIN D NOS [Concomitant]
     Dosage: 400 UKN, BID
  3. CALCIUM [Concomitant]
     Dosage: 500 UKN, BID

REACTIONS (6)
  - Ankle fracture [Unknown]
  - Radius fracture [Unknown]
  - Ulna fracture [Unknown]
  - Fall [Unknown]
  - Renal failure chronic [Unknown]
  - Blood creatinine increased [Unknown]
